FAERS Safety Report 21340547 (Version 2)
Quarter: 2022Q3

REPORT INFORMATION
  Report Type: Report from Study
  Country: US (occurrence: None)
  Receive Date: 20220916
  Receipt Date: 20220920
  Transmission Date: 20221027
  Serious: Yes (Death)
  Sender: FDA-Public Use
  Company Number: US-ROCHE-3178600

PATIENT
  Age: 81 Year
  Sex: Female
  Weight: 119 kg

DRUGS (17)
  1. RANIBIZUMAB [Suspect]
     Active Substance: RANIBIZUMAB
     Indication: Diabetic retinal oedema
     Dosage: DOSE OF STUDY DRUG FIRST ADMINISTERED 6 MG/ML?ON 11/MAY/2022, SHE HAD LAST REFILL.
     Route: 050
     Dates: start: 20200904
  2. RANIBIZUMAB [Suspect]
     Active Substance: RANIBIZUMAB
  3. RANIBIZUMAB [Suspect]
     Active Substance: RANIBIZUMAB
  4. RANIBIZUMAB [Suspect]
     Active Substance: RANIBIZUMAB
  5. RANIBIZUMAB [Suspect]
     Active Substance: RANIBIZUMAB
  6. RANIBIZUMAB [Suspect]
     Active Substance: RANIBIZUMAB
  7. RANIBIZUMAB [Concomitant]
     Active Substance: RANIBIZUMAB
     Dosage: DOSE OF STUDY DRUG FIRST ADMINISTERED 6 MG/ML
     Route: 042
     Dates: start: 20201002
  8. METFORMIN [Concomitant]
     Active Substance: METFORMIN HYDROCHLORIDE
     Indication: Type 2 diabetes mellitus
     Dosage: 850 OTHER
     Dates: start: 2015
  9. AMLODIPINE [Concomitant]
     Active Substance: AMLODIPINE BESYLATE
     Indication: Hypertension
     Dosage: 5 OTHER
     Route: 048
     Dates: start: 2015
  10. VALSARTAN [Concomitant]
     Active Substance: VALSARTAN
     Indication: Hyperlipidaemia
     Dosage: 160OTHER
     Route: 048
     Dates: start: 2015
  11. MAGNESIUM [Concomitant]
     Active Substance: MAGNESIUM
     Dosage: 400 MG/ML
     Route: 048
     Dates: start: 2018
  12. GLIPIZIDE [Concomitant]
     Active Substance: GLIPIZIDE
     Dosage: MEDICATION DOSE 10 MG/ML
     Route: 048
     Dates: start: 2015
  13. AMILORIDE [Concomitant]
     Active Substance: AMILORIDE
     Indication: Hypertension
     Dosage: 10 MG/ML
     Route: 048
     Dates: start: 2015
  14. ROSUVASTATIN [Concomitant]
     Active Substance: ROSUVASTATIN
     Indication: Hyperlipidaemia
     Dosage: 10 MG/ML
     Route: 048
     Dates: start: 2015
  15. ELIQUIS [Concomitant]
     Active Substance: APIXABAN
     Indication: Atrial fibrillation
     Route: 048
     Dates: start: 20210123
  16. ASPIRIN [Concomitant]
     Active Substance: ASPIRIN
     Indication: Atrial fibrillation
     Route: 048
     Dates: start: 20210123
  17. ALEVE [Concomitant]
     Active Substance: NAPROXEN SODIUM
     Indication: Pain
     Route: 048
     Dates: start: 20210123

REACTIONS (1)
  - Death [Fatal]

NARRATIVE: CASE EVENT DATE: 20220912
